FAERS Safety Report 14787376 (Version 1)
Quarter: 2018Q2

REPORT INFORMATION
  Report Type: Spontaneous
  Country: IN (occurrence: IN)
  Receive Date: 20180421
  Receipt Date: 20180421
  Transmission Date: 20180711
  Serious: Yes (Other)
  Sender: FDA-Public Use
  Company Number: IN-AMGEN-INDSP2018022637

PATIENT
  Age: 58 Year
  Sex: Male

DRUGS (2)
  1. VECTIBIX [Suspect]
     Active Substance: PANITUMUMAB
     Indication: COLON CANCER
     Dosage: 4 VIALS/ 15 DAYS
     Route: 042
     Dates: start: 20171005
  2. VECTIBIX [Suspect]
     Active Substance: PANITUMUMAB
     Dosage: 2 VIALS/ 15 DAYS
     Route: 042

REACTIONS (7)
  - Laceration [Recovering/Resolving]
  - Skin fissures [Recovering/Resolving]
  - Weight decreased [Unknown]
  - Vomiting [Unknown]
  - Colon cancer [Unknown]
  - Furuncle [Recovering/Resolving]
  - Adverse reaction [Unknown]
